FAERS Safety Report 12326257 (Version 1)
Quarter: 2016Q2

REPORT INFORMATION
  Report Type: Spontaneous
  Country: IT (occurrence: IT)
  Receive Date: 20160503
  Receipt Date: 20160503
  Transmission Date: 20160815
  Serious: Yes (Other)
  Sender: FDA-Public Use
  Company Number: IT-ROCHE-1669266

PATIENT
  Age: 46 Year
  Sex: Female
  Weight: 74 kg

DRUGS (4)
  1. XELODA [Suspect]
     Active Substance: CAPECITABINE
     Dosage: 120 X 500 MG FILM-COATED TABLETS
     Route: 048
     Dates: start: 20160122, end: 20160205
  2. XELODA [Suspect]
     Active Substance: CAPECITABINE
     Indication: BREAST CANCER STAGE IV
     Dosage: 120 X 500 MG FILM-COATED TABLETS
     Route: 048
     Dates: start: 20151027, end: 20151125
  3. TYVERB [Suspect]
     Active Substance: LAPATINIB
     Indication: BREAST CANCER STAGE IV
     Dosage: 250 MG FILM-COATED TABLET^
     Route: 048
     Dates: start: 20151027, end: 20151125
  4. TYVERB [Suspect]
     Active Substance: LAPATINIB
     Dosage: ^250 MG FILM-COATED TABLET^
     Route: 048
     Dates: start: 20160122, end: 20160205

REACTIONS (5)
  - Thrombocytopenia [Recovering/Resolving]
  - Anaemia [Recovering/Resolving]
  - Ill-defined disorder [Recovering/Resolving]
  - Diarrhoea [Recovering/Resolving]
  - Neutropenia [Recovering/Resolving]

NARRATIVE: CASE EVENT DATE: 20151110
